FAERS Safety Report 5658016-3 (Version None)
Quarter: 2008Q1

REPORT INFORMATION
  Report Type: 
  Country: None (occurrence: None)
  Receive Date: 20080306
  Receipt Date: 20080222
  Transmission Date: 20080703
  Serious: Yes (Hospitalization, Other)
  Sender: FDA-Public Use
  Company Number: 231191J08USA

PATIENT
  Age: 63 Year
  Sex: Female
  Weight: 104.1459 kg

DRUGS (14)
  1. REBIF [Suspect]
     Indication: MULTIPLE SCLEROSIS
     Dosage: 44 MCG, 3 IN 1 WEEKS, SUBCUTANEOUS
     Route: 058
     Dates: start: 20061122
  2. PREMPRO [Suspect]
     Indication: HORMONE REPLACEMENT THERAPY
     Dates: start: 20070601, end: 20070701
  3. CELEBREX [Suspect]
     Indication: MULTIPLE SCLEROSIS
     Dates: end: 20070701
  4. SYNTHROID [Concomitant]
  5. PRAVASTATIN [Concomitant]
  6. IBUPROFEN [Concomitant]
  7. PURPLE PILL (ALL OTHER THERAPEUTIC PRODUCTS) [Concomitant]
  8. COZAAR [Concomitant]
  9. DILTIAZEM (DILTIAZEM /00489701/) [Concomitant]
  10. WELLBUTRIN [Concomitant]
  11. SEOQUEL (QUETIAPINE) [Concomitant]
  12. ZETIA [Concomitant]
  13. PREMPRO (PROVELLA-14) [Concomitant]
  14. TRICOR [Concomitant]

REACTIONS (7)
  - ACUTE MYOCARDIAL INFARCTION [None]
  - ANAEMIA [None]
  - CORONARY ARTERY OCCLUSION [None]
  - MUSCULOSKELETAL DISCOMFORT [None]
  - PAIN IN JAW [None]
  - SINUSITIS [None]
  - WHITE BLOOD CELL COUNT DECREASED [None]
